FAERS Safety Report 9780769 (Version 1)
Quarter: 2013Q4

REPORT INFORMATION
  Report Type: Spontaneous
  Country: ZA (occurrence: ZA)
  Receive Date: 20131224
  Receipt Date: 20131224
  Transmission Date: 20140711
  Serious: Yes (Other)
  Sender: FDA-Public Use
  Company Number: PHHY2013ZA149963

PATIENT
  Age: 86 Year
  Sex: Female

DRUGS (2)
  1. TAREG [Suspect]
     Dosage: 80 MG, DAILY
  2. TAREG [Suspect]
     Dosage: 160 MG, UNK
     Dates: start: 20131218

REACTIONS (6)
  - Deafness [Unknown]
  - Fluid retention [Recovered/Resolved]
  - Dysuria [Recovered/Resolved]
  - Local swelling [Unknown]
  - Gait disturbance [Unknown]
  - Hypertension [Unknown]
